FAERS Safety Report 6959943-7 (Version None)
Quarter: 2010Q3

REPORT INFORMATION
  Report Type: 
  Country: None (occurrence: None)
  Receive Date: 20100901
  Receipt Date: 20100818
  Transmission Date: 20110219
  Serious: Yes (Hospitalization)
  Sender: FDA-Public Use
  Company Number: PHHY2010FR52096

PATIENT
  Sex: Male

DRUGS (3)
  1. TEGRETOL [Suspect]
     Dosage: UNK
     Dates: start: 19970101
  2. TEGRETOL [Suspect]
     Dosage: 600 MG, DAILY
     Dates: start: 20100809
  3. DEPAKENE [Suspect]
     Dosage: UNK
     Dates: start: 19970101

REACTIONS (8)
  - BONE DENSITY DECREASED [None]
  - HUMERUS FRACTURE [None]
  - HYPOCALCAEMIA [None]
  - INTESTINAL OBSTRUCTION [None]
  - RADIUS FRACTURE [None]
  - STERNAL FRACTURE [None]
  - TIBIA FRACTURE [None]
  - VITAMIN D DEFICIENCY [None]
